FAERS Safety Report 13145637 (Version 11)
Quarter: 2017Q3

REPORT INFORMATION
  Report Type: Report from Study
  Country: US (occurrence: US)
  Receive Date: 20170124
  Receipt Date: 20170811
  Transmission Date: 20171127
  Serious: Yes (Hospitalization, Other)
  Sender: FDA-Public Use
  Company Number: US-ACTELION-A-US2016-133901

PATIENT
  Age: 42 Year
  Sex: Female
  Weight: 58.96 kg

DRUGS (9)
  1. PREDNISONE. [Concomitant]
     Active Substance: PREDNISONE
     Dosage: UNK
     Dates: start: 20170224
  2. OPSUMIT [Suspect]
     Active Substance: MACITENTAN
     Dosage: UNK
     Route: 048
  3. OPSUMIT [Suspect]
     Active Substance: MACITENTAN
     Indication: PULMONARY ARTERIAL HYPERTENSION
     Dosage: 10 MG, QD
     Route: 048
     Dates: start: 20151018
  4. OXYGEN. [Concomitant]
     Active Substance: OXYGEN
  5. UPTRAVI [Suspect]
     Active Substance: SELEXIPAG
     Dosage: 600 MCG, BID
     Route: 048
     Dates: start: 20160303, end: 20161121
  6. ADEMPAS [Concomitant]
     Active Substance: RIOCIGUAT
     Dosage: 1.5 MG, UNK
  7. SILDENAFIL. [Concomitant]
     Active Substance: SILDENAFIL
  8. UPTRAVI [Suspect]
     Active Substance: SELEXIPAG
     Indication: PULMONARY ARTERIAL HYPERTENSION
     Dosage: 1000 MCG, BID
     Route: 048
     Dates: start: 20161121
  9. NYSTATIN. [Concomitant]
     Active Substance: NYSTATIN
     Dosage: UNK
     Dates: start: 20170224

REACTIONS (19)
  - Malaise [Unknown]
  - Oedema peripheral [Unknown]
  - Fatigue [Unknown]
  - Pneumonia viral [Recovered/Resolved with Sequelae]
  - Diarrhoea [Unknown]
  - Myalgia [Unknown]
  - Pain [Unknown]
  - Blood pressure abnormal [Unknown]
  - Viral infection [Not Recovered/Not Resolved]
  - Pneumonia [Unknown]
  - Oxygen therapy [Unknown]
  - Palpitations [Unknown]
  - Oxygen saturation decreased [Unknown]
  - Hypoxia [Recovered/Resolved with Sequelae]
  - Chest pain [Unknown]
  - Dyspnoea [Recovered/Resolved with Sequelae]
  - Headache [Recovered/Resolved]
  - Oedema [Unknown]
  - Nasopharyngitis [Unknown]

NARRATIVE: CASE EVENT DATE: 20151018
